FAERS Safety Report 6085735-X (Version None)
Quarter: 2009Q1

REPORT INFORMATION
  Report Type: 
  Country: None (occurrence: None)
  Receive Date: 20090220
  Receipt Date: 20090213
  Transmission Date: 20090719
  Serious: Yes (Other)
  Sender: FDA-Public Use
  Company Number: PHHY2009SI05300

PATIENT
  Sex: Female

DRUGS (5)
  1. SANDIMMUNE [Suspect]
     Indication: PSORIASIS
     Dosage: 300 MG/DAY
     Route: 048
     Dates: start: 20071201
  2. SANDIMMUNE [Suspect]
     Dosage: 200 MG/DAY
     Route: 048
     Dates: start: 20090105
  3. RELPAX [Concomitant]
     Indication: MIGRAINE
     Dosage: UNK
  4. IMIGRAN [Concomitant]
     Indication: MIGRAINE
     Dosage: UNK
  5. TOLTERODINE TARTRATE [Concomitant]
     Dosage: UNK
     Dates: start: 20080402

REACTIONS (3)
  - INTESTINAL POLYP [None]
  - TUMOUR MARKER INCREASED [None]
  - UTERINE POLYP [None]
